FAERS Safety Report 6823341-7 (Version None)
Quarter: 2010Q3

REPORT INFORMATION
  Report Type: 
  Country: None (occurrence: None)
  Receive Date: 20100708
  Receipt Date: 20100630
  Transmission Date: 20110219
  Serious: Yes (Hospitalization)
  Sender: FDA-Public Use
  Company Number: JP-BAXTER-2010BH017896

PATIENT
  Age: 13 Year
  Sex: Female

DRUGS (2)
  1. HOLOXAN BAXTER [Suspect]
     Indication: BONE SARCOMA
     Route: 065
  2. CISPLATIN [Suspect]
     Indication: BONE SARCOMA
     Route: 065

REACTIONS (2)
  - FANCONI SYNDROME [None]
  - RENAL IMPAIRMENT [None]
